FAERS Safety Report 9919057 (Version 1)
Quarter: 2014Q1

REPORT INFORMATION
  Report Type: Spontaneous
  Country: US (occurrence: US)
  Receive Date: 20140224
  Receipt Date: 20140224
  Transmission Date: 20141002
  Serious: No
  Sender: FDA-Public Use
  Company Number: US-BAYER-2014-028438

PATIENT
  Age: 89 Year
  Sex: Male
  Weight: 77 kg

DRUGS (4)
  1. ALEVE CAPLET [Suspect]
     Dosage: 1 DF, QD
     Route: 048
  2. CENTRUM SILVER [Concomitant]
  3. LATANOPROST [Concomitant]
  4. CALCIUM [Concomitant]

REACTIONS (1)
  - Incorrect drug administration duration [None]
